FAERS Safety Report 15058298 (Version 1)
Quarter: 2018Q2

REPORT INFORMATION
  Report Type: Other
  Country: US (occurrence: US)
  Receive Date: 20180625
  Receipt Date: 20180625
  Transmission Date: 20180711
  Serious: Yes (Life-Threatening, Other)
  Sender: FDA-Public Use
  Company Number: US-DENTSPLY-2018SCDP000233

PATIENT
  Age: 58 Year
  Sex: Female

DRUGS (1)
  1. LIDOCAINE HCL [Suspect]
     Active Substance: LIDOCAINE HYDROCHLORIDE
     Indication: ENDODONTIC PROCEDURE
     Dosage: UNK

REACTIONS (3)
  - Heart rate decreased [Unknown]
  - Blood pressure increased [None]
  - Carotid artery dissection [None]
